FAERS Safety Report 26176501 (Version 1)
Quarter: 2025Q4

REPORT INFORMATION
  Report Type: Spontaneous
  Country: PR (occurrence: PR)
  Receive Date: 20251218
  Receipt Date: 20251218
  Transmission Date: 20260117
  Serious: No
  Sender: ANI
  Company Number: PR-ANIPHARMA-2025-PR-000116

PATIENT
  Age: 75 Year
  Sex: Female
  Weight: 67.13 kg

DRUGS (7)
  1. CORTICOTROPIN [Suspect]
     Active Substance: CORTICOTROPIN
     Indication: Gout
     Route: 058
  2. CLOPIDOGREL [Concomitant]
     Active Substance: CLOPIDOGREL BISULFATE
  3. IRON\VITAMIN B [Concomitant]
     Active Substance: IRON\VITAMIN B
  4. ALBUTEROL [Concomitant]
     Active Substance: ALBUTEROL
  5. JANUVIA [Concomitant]
     Active Substance: SITAGLIPTIN PHOSPHATE
  6. LEVOTHYROXINE [Concomitant]
     Active Substance: LEVOTHYROXINE
  7. VITAMIN D3 [Concomitant]
     Active Substance: CHOLECALCIFEROL

REACTIONS (2)
  - Peripheral swelling [Not Recovered/Not Resolved]
  - Contraindicated product administered [Unknown]
